FAERS Safety Report 10042940 (Version 1)
Quarter: 2014Q1

REPORT INFORMATION
  Report Type: Spontaneous
  Country: US (occurrence: US)
  Receive Date: 20140328
  Receipt Date: 20140328
  Transmission Date: 20141002
  Serious: Yes (Hospitalization)
  Sender: FDA-Public Use
  Company Number: 2014SP001625

PATIENT
  Sex: Female
  Weight: 98.8 kg

DRUGS (9)
  1. OXALIPLATIN [Suspect]
     Indication: ADENOCARCINOMA OF COLON
     Route: 042
     Dates: start: 20110301
  2. OXALIPLATIN [Suspect]
     Indication: ADENOCARCINOMA OF COLON
     Route: 042
     Dates: start: 20131008, end: 20131125
  3. FLUOROURACIL [Suspect]
     Indication: ADENOCARCINOMA OF COLON
     Route: 042
     Dates: start: 20110301
  4. FLUOROURACIL [Suspect]
     Indication: ADENOCARCINOMA OF COLON
     Route: 042
     Dates: start: 20110301
  5. FLUOROURACIL [Suspect]
     Indication: ADENOCARCINOMA OF COLON
     Dates: start: 20131008, end: 20131125
  6. FLUOROURACIL [Suspect]
     Indication: ADENOCARCINOMA OF COLON
     Dates: start: 20131008, end: 20131125
  7. CALCIUM FOLINATE [Suspect]
     Indication: ADENOCARCINOMA OF COLON
     Route: 042
     Dates: start: 20110301
  8. CALCIUM FOLINATE [Suspect]
     Indication: ADENOCARCINOMA OF COLON
     Route: 042
     Dates: start: 20131008, end: 20131125
  9. CELEBREX [Suspect]
     Indication: ADENOCARCINOMA OF COLON
     Route: 048
     Dates: end: 20131125

REACTIONS (2)
  - Diverticulitis [Recovered/Resolved with Sequelae]
  - Abdominal pain [Recovered/Resolved with Sequelae]
